FAERS Safety Report 14582522 (Version 1)
Quarter: 2018Q1

REPORT INFORMATION
  Report Type: Other
  Country: DE (occurrence: DE)
  Receive Date: 20180228
  Receipt Date: 20180228
  Transmission Date: 20180509
  Serious: Yes (Hospitalization)
  Sender: FDA-Public Use
  Company Number: DE-CELLTRION INC.-2018DE018163

PATIENT

DRUGS (2)
  1. REMSIMA [Suspect]
     Active Substance: INFLIXIMAB
     Indication: CROHN^S DISEASE
     Dosage: 300 MG
     Route: 042
     Dates: start: 20170301, end: 20170301
  2. REMSIMA [Suspect]
     Active Substance: INFLIXIMAB
     Dosage: 300 MG
     Route: 042
     Dates: start: 20170316, end: 20170316

REACTIONS (5)
  - Chills [Unknown]
  - Pyrexia [Unknown]
  - Incorrect dose administered [Unknown]
  - Inappropriate schedule of drug administration [Unknown]
  - Tachycardia [Unknown]

NARRATIVE: CASE EVENT DATE: 20170301
